FAERS Safety Report 11068616 (Version 1)
Quarter: 2015Q2

REPORT INFORMATION
  Report Type: Report from Study
  Country: JP (occurrence: JP)
  Receive Date: 20150427
  Receipt Date: 20150427
  Transmission Date: 20150821
  Serious: Yes (Other)
  Sender: FDA-Public Use
  Company Number: JP-SA-THYM-1000983

PATIENT
  Age: 16 Year
  Sex: Male
  Weight: 49 kg

DRUGS (12)
  1. CEFEPIME HYDROCHLORIDE. [Concomitant]
     Active Substance: CEFEPIME HYDROCHLORIDE
     Indication: PROPHYLAXIS
     Dosage: 2 G, BID
     Dates: start: 20090313, end: 20090322
  2. ACICLOVIR SODIUM [Concomitant]
     Indication: ANTIVIRAL PROPHYLAXIS
     Dosage: 200 MG, NA
     Dates: start: 20090312
  3. MEROPENEM TRIHYDRATE [Concomitant]
     Active Substance: MEROPENEM
     Indication: APLASTIC ANAEMIA
     Dosage: UNK
     Dates: start: 20090322, end: 20090331
  4. METHOTREXATE [Suspect]
     Active Substance: METHOTREXATE
     Indication: APLASTIC ANAEMIA
     Dosage: 15 MG, QD
     Route: 065
     Dates: start: 20090319, end: 20090319
  5. CYCLOPHOSPHAMIDE. [Concomitant]
     Active Substance: CYCLOPHOSPHAMIDE
     Indication: APLASTIC ANAEMIA
     Dosage: 2400 MG, QD
     Dates: start: 20090313, end: 20090316
  6. METHOTREXATE [Suspect]
     Active Substance: METHOTREXATE
     Indication: APLASTIC ANAEMIA
     Dosage: 11 MG, QD
     Route: 065
     Dates: start: 20090321, end: 20090321
  7. MICAFUNGIN SODIUM [Concomitant]
     Active Substance: MICAFUNGIN SODIUM
     Indication: ANTIFUNGAL PROPHYLAXIS
     Dosage: UNK
     Dates: start: 20090319, end: 20090322
  8. METHYLPREDNISOLONE SODIUM SUCCINATE. [Concomitant]
     Active Substance: METHYLPREDNISOLONE SODIUM SUCCINATE
     Indication: PREMEDICATION
     Dosage: 60 MG, UNK
     Dates: start: 20090314, end: 20090316
  9. FLUCONAZOLE. [Concomitant]
     Active Substance: FLUCONAZOLE
     Indication: ANTIFUNGAL PROPHYLAXIS
     Dosage: UNK
     Dates: start: 20090323, end: 20090521
  10. MEROPENEM TRIHYDRATE [Concomitant]
     Active Substance: MEROPENEM
     Indication: PROPHYLAXIS
     Dosage: UNK
     Dates: start: 20090322, end: 20090331
  11. THYMOGLOBULINE [Suspect]
     Active Substance: LAPINE T-LYMPHOCYTE IMMUNE GLOBULIN
     Indication: BONE MARROW CONDITIONING REGIMEN
     Dosage: 120 MG, QD
     Route: 042
     Dates: start: 20090313, end: 20090316
  12. SULFAMETOXAZOL MED TRIMETOPRIM [Concomitant]
     Indication: PNEUMOCYSTIS JIROVECII PNEUMONIA
     Dosage: 2 DF, BID
     Dates: start: 20090306, end: 20090314

REACTIONS (2)
  - Pyrexia [Recovered/Resolved]
  - Liver disorder [Recovered/Resolved]

NARRATIVE: CASE EVENT DATE: 20090313
